FAERS Safety Report 15900540 (Version 1)
Quarter: 2019Q1

REPORT INFORMATION
  Report Type: Spontaneous
  Country: US (occurrence: US)
  Receive Date: 20190131
  Receipt Date: 20190131
  Transmission Date: 20190417
  Serious: Yes (Disabling)
  Sender: FDA-Public Use
  Company Number: None

PATIENT
  Age: 14 Month
  Sex: Female
  Weight: 10.35 kg

DRUGS (1)
  1. INFANTS IBUPROFEN [Suspect]
     Active Substance: IBUPROFEN
     Indication: TEETHING
     Dosage: ?          QUANTITY:1.875 ML;?
     Route: 048
     Dates: start: 20190126, end: 20190131

REACTIONS (3)
  - Irritability [None]
  - Diarrhoea [None]
  - Recalled product administered [None]

NARRATIVE: CASE EVENT DATE: 20190131
